FAERS Safety Report 7403659-X (Version None)
Quarter: 2011Q2

REPORT INFORMATION
  Report Type: 
  Country: None (occurrence: None)
  Receive Date: 20110408
  Receipt Date: 20110325
  Transmission Date: 20111010
  Serious: Yes (Hospitalization, Other)
  Sender: FDA-Public Use
  Company Number: GXKR2011DK01299

PATIENT
  Sex: Female

DRUGS (3)
  1. GABAPENTIN [Suspect]
     Indication: PAIN
     Dosage: 300 MG, TID
     Route: 048
     Dates: start: 20110102, end: 20110309
  2. CITALOPRAM SANDOZ [Suspect]
     Indication: DEPRESSION
     Dosage: 80 MG, QD
     Route: 048
     Dates: start: 20080101, end: 20110309
  3. ELTROXIN [Concomitant]
     Indication: MYXOEDEMA
     Dates: start: 20070101

REACTIONS (12)
  - DIZZINESS [None]
  - BLINDNESS [None]
  - SPEECH DISORDER [None]
  - NAUSEA [None]
  - HYPERACUSIS [None]
  - APHASIA [None]
  - ASTHENIA [None]
  - DISTURBANCE IN ATTENTION [None]
  - PHOTOPHOBIA [None]
  - TREMOR [None]
  - HEMIANOPIA HETERONYMOUS [None]
  - HEADACHE [None]
